FAERS Safety Report 17880250 (Version 1)
Quarter: 2020Q2

REPORT INFORMATION
  Report Type: Spontaneous
  Country: US (occurrence: US)
  Receive Date: 20200610
  Receipt Date: 20200610
  Transmission Date: 20200714
  Serious: Yes (Other)
  Sender: FDA-Public Use
  Company Number: US-AKORN PHARMACEUTICALS-2020AKN00682

PATIENT
  Sex: Female
  Weight: 58.5 kg

DRUGS (3)
  1. MYORISAN [Suspect]
     Active Substance: ISOTRETINOIN
     Indication: ACNE
     Dosage: 40 MG, 1X/DAY EVERY OTHER DAY (ALTERNATING WITH 2X/DAY)
     Route: 048
     Dates: start: 20200430, end: 2020
  2. MYORISAN [Suspect]
     Active Substance: ISOTRETINOIN
     Dosage: 40 MG, 2X/DAY EVERY OTHER DAY (ALTERNATING WITH 1X/DAY)
     Route: 048
     Dates: start: 20200430, end: 2020
  3. MYORISAN [Suspect]
     Active Substance: ISOTRETINOIN
     Dosage: 40 MG, ^2 EVERY OTHER DAY^
     Route: 048
     Dates: start: 202005, end: 20200504

REACTIONS (2)
  - Affect lability [Unknown]
  - Off label use [Recovered/Resolved]

NARRATIVE: CASE EVENT DATE: 2020
